FAERS Safety Report 25134436 (Version 1)
Quarter: 2025Q1

REPORT INFORMATION
  Report Type: Spontaneous
  Country: US (occurrence: None)
  Receive Date: 20250327
  Receipt Date: 20250327
  Transmission Date: 20250409
  Serious: Yes (Hospitalization)
  Sender: FDA-CTU
  Company Number: None

PATIENT
  Sex: Female

DRUGS (11)
  1. LENALIDOMIDE [Suspect]
     Active Substance: LENALIDOMIDE
     Indication: Plasma cell myeloma
     Dosage: FREQUENCY : DAILY;?
  2. AMLODIPINE [Concomitant]
     Active Substance: AMLODIPINE BESYLATE
  3. ASPIRIN LOW TAB 81 MG EC [Concomitant]
  4. ATENOLOL TAB 25MG [Concomitant]
  5. BISOPROL FUM TAB 5MG [Concomitant]
  6. CHOLESTYRAM POW 4GM [Concomitant]
  7. D3 CAP 10000 [Concomitant]
  8. FLONASE ALGY SPR 50MCG [Concomitant]
  9. LENALIDOMIDE [Concomitant]
     Active Substance: LENALIDOMIDE
  10. MAGNESIUM TAB 250MG [Concomitant]
  11. PROBIOTIC CAP ADULT [Concomitant]

REACTIONS (1)
  - Illness [None]
